FAERS Safety Report 5151319-0 (Version None)
Quarter: 2006Q4

REPORT INFORMATION
  Report Type: 
  Country: None (occurrence: None)
  Receive Date: 20061115
  Receipt Date: 20060609
  Transmission Date: 20070319
  Serious: Yes (Other)
  Sender: FDA-Public Use
  Company Number: 2006JP001230

PATIENT
  Age: 53 Year
  Sex: Female
  Weight: 72 kg

DRUGS (4)
  1. CEFAZOLIN [Suspect]
     Indication: ACUTE TONSILLITIS
     Dosage: 1G FOUR TIMES PER DAY
     Route: 042
     Dates: start: 20060213, end: 20060213
  2. CHONDROITINE SULFATE SODIUM [Suspect]
     Indication: UPPER RESPIRATORY TRACT INFLAMMATION
     Dosage: 20ML PER DAY
     Route: 042
     Dates: start: 20060213, end: 20060213
  3. HARTMANNS [Concomitant]
     Indication: DRUG USE FOR UNKNOWN INDICATION
     Route: 065
     Dates: start: 20060213, end: 20060213
  4. GLYCYRRHIZIN [Concomitant]
     Indication: DRUG USE FOR UNKNOWN INDICATION
     Route: 065

REACTIONS (17)
  - BACK PAIN [None]
  - CHEST DISCOMFORT [None]
  - CHEST PAIN [None]
  - EAR PRURITUS [None]
  - HEAD TITUBATION [None]
  - HEADACHE [None]
  - INJECTION SITE ANAESTHESIA [None]
  - INJECTION SITE PAIN [None]
  - INJECTION SITE SWELLING [None]
  - MUSCULOSKELETAL PAIN [None]
  - NECK PAIN [None]
  - OEDEMA PERIPHERAL [None]
  - PAIN IN EXTREMITY [None]
  - PRURITUS [None]
  - PRURITUS GENERALISED [None]
  - SENSORY DISTURBANCE [None]
  - SWELLING [None]
